FAERS Safety Report 11227518 (Version 1)
Quarter: 2015Q2

REPORT INFORMATION
  Report Type: Spontaneous
  Country: LK (occurrence: None)
  Receive Date: 20150626
  Receipt Date: 20150626
  Transmission Date: 20150821
  Serious: Yes (Other)
  Sender: FDA-Public Use
  Company Number: None

PATIENT
  Age: 20 Year
  Sex: Male
  Weight: 77 kg

DRUGS (4)
  1. FERVEX [Concomitant]
     Active Substance: ACETAMINOPHEN\ASCORBIC ACID\PHENIRAMINE MALEATE
  2. AUGMENTIN [Suspect]
     Active Substance: AMOXICILLIN\CLAVULANATE POTASSIUM
     Indication: TONSILLAR INFLAMMATION
     Route: 048
     Dates: start: 20150623, end: 20150624
  3. LEVOTHYROXIN [Concomitant]
     Active Substance: LEVOTHYROXINE
  4. AULIN [Concomitant]
     Active Substance: NIMESULIDE

REACTIONS (1)
  - Drug hypersensitivity [None]

NARRATIVE: CASE EVENT DATE: 20150624
